FAERS Safety Report 25614041 (Version 1)
Quarter: 2025Q3

REPORT INFORMATION
  Report Type: Spontaneous
  Country: US (occurrence: US)
  Receive Date: 20250728
  Receipt Date: 20250728
  Transmission Date: 20251020
  Serious: Yes (Other)
  Sender: DAIICHI
  Company Number: US-DSJP-DS-2025-155043-US

PATIENT
  Sex: Female

DRUGS (1)
  1. ENHERTU [Suspect]
     Active Substance: FAM-TRASTUZUMAB DERUXTECAN-NXKI
     Indication: Breast cancer metastatic
     Route: 065
     Dates: start: 2023

REACTIONS (12)
  - Seizure [Unknown]
  - Vision blurred [Unknown]
  - Dry eye [Unknown]
  - Glaucoma [Unknown]
  - Constipation [Unknown]
  - Brain fog [Unknown]
  - Tooth disorder [Unknown]
  - Bone pain [Unknown]
  - Blood glucose increased [Unknown]
  - Alopecia [Unknown]
  - Dyspnoea [Unknown]
  - Off label use [Unknown]
